FAERS Safety Report 8546433-3 (Version None)
Quarter: 2012Q3

REPORT INFORMATION
  Report Type: 
  Country: None (occurrence: None)
  Receive Date: 20120727
  Receipt Date: 20120229
  Transmission Date: 20120928
  Serious: No
  Sender: FDA-Public Use
  Company Number: US-ASTRAZENECA-2012SE01645

PATIENT
  Age: 4 Year
  Sex: Male
  Weight: 22.7 kg

DRUGS (7)
  1. VENTOLIN [Concomitant]
  2. MV [Concomitant]
  3. FLOVENT [Concomitant]
  4. SEROQUEL [Suspect]
     Indication: BIPOLAR DISORDER
     Route: 048
  5. XANAX [Concomitant]
  6. CETIRIZINE HCL [Concomitant]
     Indication: HYPERSENSITIVITY
  7. GUAIFENESIN [Concomitant]

REACTIONS (5)
  - MOOD SWINGS [None]
  - DRUG ADMINISTERED TO PATIENT OF INAPPROPRIATE AGE [None]
  - DRUG DOSE OMISSION [None]
  - CRYING [None]
  - ABNORMAL BEHAVIOUR [None]
